FAERS Safety Report 6120665-6 (Version None)
Quarter: 2009Q1

REPORT INFORMATION
  Report Type: 
  Country: None (occurrence: None)
  Receive Date: 20090312
  Receipt Date: 20090312
  Transmission Date: 20090719
  Serious: No
  Sender: FDA-Public Use
  Company Number: None

PATIENT
  Age: 78 Year
  Sex: Female
  Weight: 51.2565 kg

DRUGS (1)
  1. RECLAST [Suspect]
     Indication: OSTEOPOROSIS
     Dosage: 5MG ANNUALLY IV
     Route: 042
     Dates: start: 20090310, end: 20090310

REACTIONS (1)
  - CONTRAINDICATION TO MEDICAL TREATMENT [None]
